FAERS Safety Report 9708614 (Version 1)
Quarter: 2013Q4

REPORT INFORMATION
  Report Type: Spontaneous
  Country: IT (occurrence: IT)
  Receive Date: 20131125
  Receipt Date: 20131125
  Transmission Date: 20140711
  Serious: Yes (Other)
  Sender: FDA-Public Use
  Company Number: IT-TEVA-445487ISR

PATIENT
  Age: 37 Year
  Sex: Female

DRUGS (3)
  1. NAEMIS 3.75 MG/1.5 MG [Suspect]
     Indication: ENDOMETRIOSIS
     Dosage: 1 DOSAGE FORMS DAILY;
     Route: 048
     Dates: start: 20131029, end: 20131029
  2. VESSEL [Concomitant]
     Dosage: 2 DOSAGE FORMS DAILY; SOFT CAPSULE
     Route: 048
     Dates: start: 20131029, end: 20131029
  3. EUTIROX 50MCG [Concomitant]

REACTIONS (5)
  - Pulmonary embolism [Recovering/Resolving]
  - Headache [Recovering/Resolving]
  - Vomiting [Recovering/Resolving]
  - Dyspnoea [Recovering/Resolving]
  - Pyrexia [Recovering/Resolving]
